FAERS Safety Report 5132369-7 (Version None)
Quarter: 2006Q4

REPORT INFORMATION
  Report Type: 
  Country: None (occurrence: None)
  Receive Date: 20061019
  Receipt Date: 20061019
  Transmission Date: 20070319
  Serious: Yes (Hospitalization)
  Sender: FDA-Public Use
  Company Number: None

PATIENT
  Age: 34 Year
  Sex: Male

DRUGS (4)
  1. AUGMENTIN [Suspect]
     Indication: ACUTE SINUSITIS
     Dosage: ONE GRAM TWICE A DAY BY MOUTH; TOTAL OF 4 GRAMS
     Route: 048
  2. BRONCHOPHANE [Concomitant]
  3. ROXONIN [Concomitant]
  4. LORINE (LORATADINE) [Concomitant]

REACTIONS (1)
  - CEREBROVASCULAR ACCIDENT [None]
